FAERS Safety Report 14536245 (Version 1)
Quarter: 2018Q1

REPORT INFORMATION
  Report Type: Spontaneous
  Country: US (occurrence: US)
  Receive Date: 20180215
  Receipt Date: 20180215
  Transmission Date: 20180509
  Serious: No
  Sender: FDA-Public Use
  Company Number: US-TEVA-2018-US-849112

PATIENT
  Sex: Female

DRUGS (1)
  1. BUSPIRONE [Suspect]
     Active Substance: BUSPIRONE HYDROCHLORIDE
     Indication: ANXIETY
     Route: 065
     Dates: start: 201801

REACTIONS (1)
  - Headache [Unknown]

NARRATIVE: CASE EVENT DATE: 201801
